FAERS Safety Report 13551598 (Version 2)
Quarter: 2017Q3

REPORT INFORMATION
  Report Type: Spontaneous
  Country: US (occurrence: US)
  Receive Date: 20170516
  Receipt Date: 20170826
  Transmission Date: 20171127
  Serious: No
  Sender: FDA-Public Use
  Company Number: US-009507513-1705USA003121

PATIENT
  Age: 24 Year
  Sex: Female
  Weight: 78.91 kg

DRUGS (3)
  1. NEXPLANON [Suspect]
     Active Substance: ETONOGESTREL
     Dosage: 1 DF, UNK
     Route: 059
     Dates: start: 20130120, end: 20150914
  2. LIDOCAINE. [Suspect]
     Active Substance: LIDOCAINE
     Indication: ANAESTHESIA
     Dosage: UNK UNK, UNKNOWN
     Route: 065
     Dates: start: 20170502, end: 20170502
  3. NEXPLANON [Suspect]
     Active Substance: ETONOGESTREL
     Indication: PRODUCT USED FOR UNKNOWN INDICATION
     Dosage: 1 DF, UNK
     Route: 059
     Dates: start: 20160523, end: 20170502

REACTIONS (11)
  - Peripheral swelling [Unknown]
  - Hypoaesthesia [Unknown]
  - Complication associated with device [Recovered/Resolved]
  - Neuralgia [Not Recovered/Not Resolved]
  - Limb discomfort [Not Recovered/Not Resolved]
  - Paraesthesia [Not Recovered/Not Resolved]
  - Difficulty removing drug implant [Recovered/Resolved]
  - Migration of implanted drug [Recovered/Resolved]
  - Incision site pain [Not Recovered/Not Resolved]
  - Vaginal haemorrhage [Unknown]
  - Device deployment issue [Recovered/Resolved]

NARRATIVE: CASE EVENT DATE: 20160523
